FAERS Safety Report 16961436 (Version 1)
Quarter: 2019Q4

REPORT INFORMATION
  Report Type: Spontaneous
  Country: PL (occurrence: PL)
  Receive Date: 20191025
  Receipt Date: 20191025
  Transmission Date: 20200122
  Serious: Yes (Life-Threatening, Hospitalization)
  Sender: FDA-Public Use
  Company Number: PL-PFIZER INC-2019459872

PATIENT
  Age: 76 Year
  Sex: Female
  Weight: 71 kg

DRUGS (3)
  1. VINORELBINE [Suspect]
     Active Substance: VINORELBINE TARTRATE
     Dosage: 43.5 MG, UNK
     Route: 042
     Dates: start: 20190924, end: 20190924
  2. VINORELBINE [Suspect]
     Active Substance: VINORELBINE TARTRATE
     Indication: LUNG NEOPLASM MALIGNANT
     Dosage: 43.5 MG, UNK
     Route: 042
     Dates: start: 20190917, end: 20190917
  3. CARBOPLATIN. [Suspect]
     Active Substance: CARBOPLATIN
     Indication: LUNG NEOPLASM MALIGNANT
     Dosage: 264 MG, UNK
     Route: 042
     Dates: start: 20190917, end: 20190917

REACTIONS (2)
  - Neutropenia [Recovering/Resolving]
  - Diarrhoea [Recovering/Resolving]
